FAERS Safety Report 5751403-4 (Version None)
Quarter: 2008Q2

REPORT INFORMATION
  Report Type: 
  Country: None (occurrence: None)
  Receive Date: 20080527
  Receipt Date: 20080509
  Transmission Date: 20081010
  Serious: Yes (Death)
  Sender: FDA-Public Use
  Company Number: A-US2008-20332

PATIENT
  Age: 77 Year
  Sex: Male
  Weight: 72.6 kg

DRUGS (7)
  1. TRACLEER [Suspect]
     Indication: PULMONARY ARTERIAL HYPERTENSION
     Dosage: 125 MG, BID, ORAL
     Route: 048
     Dates: start: 20071201, end: 20080401
  2. VENTAVIS [Suspect]
     Indication: PULMONARY ARTERIAL HYPERTENSION
     Dosage: 10 UG, 6X DAY, RESPIRATORY
     Route: 055
     Dates: start: 20080401, end: 20080428
  3. VIAGRA [Concomitant]
  4. WARFARIN SODIUM [Concomitant]
  5. LEVOXYL [Concomitant]
  6. SERTRALINE [Concomitant]
  7. FUROSEMIDE [Concomitant]

REACTIONS (8)
  - ALANINE AMINOTRANSFERASE INCREASED [None]
  - ASPARTATE AMINOTRANSFERASE INCREASED [None]
  - BLOOD BILIRUBIN INCREASED [None]
  - CARDIAC FAILURE [None]
  - DIZZINESS [None]
  - HEPATIC CONGESTION [None]
  - LIVER FUNCTION TEST ABNORMAL [None]
  - PULMONARY HYPERTENSION [None]
